FAERS Safety Report 24379352 (Version 1)
Quarter: 2024Q3

REPORT INFORMATION
  Report Type: Spontaneous
  Country: US (occurrence: US)
  Receive Date: 20240930
  Receipt Date: 20240930
  Transmission Date: 20241016
  Serious: No
  Sender: ROCHE
  Company Number: US-ROCHE-10000092725

PATIENT
  Age: 51 Year
  Sex: Female
  Weight: 65.8 kg

DRUGS (1)
  1. ACTEMRA [Suspect]
     Active Substance: TOCILIZUMAB
     Indication: Rheumatoid arthritis
     Route: 058
     Dates: start: 202304, end: 202409

REACTIONS (2)
  - Drug ineffective [Unknown]
  - No adverse event [Unknown]
